FAERS Safety Report 5690346-1 (Version None)
Quarter: 2008Q1

REPORT INFORMATION
  Report Type: 
  Country: None (occurrence: None)
  Receive Date: 20080331
  Receipt Date: 20080331
  Transmission Date: 20080703
  Serious: Yes (Hospitalization)
  Sender: FDA-Public Use
  Company Number: None

PATIENT
  Age: 8 Year
  Sex: Male
  Weight: 38.5557 kg

DRUGS (3)
  1. SINGULAIR [Suspect]
     Indication: ASTHMA
     Dosage: 5MG QHS PO
     Route: 048
     Dates: start: 20071012, end: 20080327
  2. PROZAC [Concomitant]
  3. FOCALIN [Concomitant]

REACTIONS (2)
  - ABNORMAL BEHAVIOUR [None]
  - HALLUCINATION, VISUAL [None]
